FAERS Safety Report 10223060 (Version 1)
Quarter: 2014Q2

REPORT INFORMATION
  Report Type: Report from Study
  Country: US (occurrence: US)
  Receive Date: 20140607
  Receipt Date: 20140607
  Transmission Date: 20141212
  Serious: Yes (Hospitalization)
  Sender: FDA-Public Use
  Company Number: PHHY2014US067032

PATIENT
  Age: 50 Year
  Sex: Male
  Weight: 93 kg

DRUGS (13)
  1. BASILIXIMAB [Suspect]
     Indication: RENAL TRANSPLANT
     Dosage: 20 MG, UNK
     Route: 042
     Dates: start: 20131023
  2. BASILIXIMAB [Suspect]
     Indication: IMMUNOSUPPRESSION
     Dosage: 20 MG, UNK
     Route: 042
     Dates: start: 20131027
  3. TACROLIMUS [Suspect]
     Indication: RENAL TRANSPLANT
     Dosage: 1.5 MG, BID
     Route: 048
     Dates: start: 20131024
  4. TACROLIMUS [Suspect]
     Indication: IMMUNOSUPPRESSION
  5. VALCYTE [Suspect]
     Indication: PROPHYLAXIS
     Dosage: 450 MG, QD
     Route: 048
     Dates: start: 20131126, end: 20140326
  6. BACTRIM DS [Suspect]
     Indication: PROPHYLAXIS
     Dosage: 1 DF, TIW
     Route: 048
     Dates: start: 20131028, end: 20140326
  7. DELTASONE [Concomitant]
     Dosage: 10 MG, UNK
     Dates: start: 20131023
  8. FLORINEF [Concomitant]
     Dosage: 0.1 MG, UNK
  9. SARNA [Concomitant]
     Dosage: UNK
  10. PRILOSEC [Concomitant]
     Dosage: 20 MG, UNK
  11. INSULIN GLARGINE [Concomitant]
     Dosage: UNK UKN, UNK
  12. INSULIN ASPART [Concomitant]
     Dosage: 100 U/ML, (UU/ML)
  13. ASPIRIN [Concomitant]
     Dosage: 81 MG, UNK

REACTIONS (8)
  - Blood alkaline phosphatase increased [Unknown]
  - Leukopenia [Not Recovered/Not Resolved]
  - Asthenia [Not Recovered/Not Resolved]
  - Pyrexia [Recovered/Resolved]
  - Staphylococcal infection [Unknown]
  - Headache [Recovered/Resolved]
  - Blood bilirubin increased [Recovered/Resolved]
  - Blood creatinine increased [Unknown]
